FAERS Safety Report 10142156 (Version 1)
Quarter: 2014Q2

REPORT INFORMATION
  Report Type: Report from Study
  Country: CA (occurrence: CA)
  Receive Date: 20140429
  Receipt Date: 20140429
  Transmission Date: 20141212
  Serious: Yes (Other)
  Sender: FDA-Public Use
  Company Number: PHHY2014CA052235

PATIENT
  Age: 56 Year
  Sex: Female

DRUGS (12)
  1. ACLASTA [Suspect]
     Indication: OSTEOPOROSIS
     Dosage: 5 MG, UNK
     Route: 042
     Dates: start: 20111121
  2. ACLASTA [Suspect]
     Dosage: 5 MG, UNK
     Route: 042
     Dates: start: 20130204
  3. ACLASTA [Suspect]
     Dosage: 5 MG, UNK
     Route: 042
     Dates: start: 20140425
  4. VERAPAMIL [Concomitant]
  5. NEXIUM [Concomitant]
  6. SYMBICORT [Concomitant]
  7. VENTOLIN [Concomitant]
  8. GRAVIS [Concomitant]
  9. VIT D [Concomitant]
  10. CALCIUM [Concomitant]
  11. HUMIRA [Concomitant]
  12. CLONAZEPAM [Concomitant]

REACTIONS (6)
  - Lip pruritus [Recovering/Resolving]
  - Erythema [Recovering/Resolving]
  - Pruritus [Recovering/Resolving]
  - Groin pain [Not Recovered/Not Resolved]
  - Pelvic pain [Not Recovered/Not Resolved]
  - Arthralgia [Not Recovered/Not Resolved]
